FAERS Safety Report 9117054 (Version 1)
Quarter: 2013Q1

REPORT INFORMATION
  Report Type: Spontaneous
  Country: US (occurrence: US)
  Receive Date: 20130225
  Receipt Date: 20130225
  Transmission Date: 20140127
  Serious: Yes (Hospitalization)
  Sender: FDA-Public Use
  Company Number: US-BAYER-2013-021741

PATIENT
  Age: 28 Year
  Sex: Female

DRUGS (8)
  1. YAZ [Suspect]
  2. VICODIN [Concomitant]
  3. NAPROXEN [Concomitant]
  4. SENNA [Concomitant]
  5. PERCOCET [Concomitant]
  6. FLEXERIL [Concomitant]
  7. COLACE [Concomitant]
  8. PROTONIX [Concomitant]

REACTIONS (2)
  - Pulmonary embolism [None]
  - Pulmonary infarction [None]
